FAERS Safety Report 5992806-2 (Version None)
Quarter: 2008Q4

REPORT INFORMATION
  Report Type: 
  Country: None (occurrence: None)
  Receive Date: 20081211
  Receipt Date: 20081208
  Transmission Date: 20090506
  Serious: Yes (Other)
  Sender: FDA-Public Use
  Company Number: US-JNJCH-2008056848

PATIENT
  Age: 49 Year
  Sex: Male
  Weight: 76.7 kg

DRUGS (1)
  1. KIRKLAND SIGNATURE 5% [Suspect]
     Indication: ALOPECIA
     Dosage: TEXT:1ML TWICE DAILY
     Route: 061

REACTIONS (1)
  - PROSTATOMEGALY [None]
